FAERS Safety Report 5053842-6 (Version None)
Quarter: 2006Q3

REPORT INFORMATION
  Report Type: 
  Country: None (occurrence: None)
  Receive Date: 20060718
  Receipt Date: 20060711
  Transmission Date: 20061208
  Serious: Yes (Hospitalization)
  Sender: FDA-Public Use
  Company Number: JP-JPN-A200602589

PATIENT
  Age: 31 Year
  Sex: Female

DRUGS (5)
  1. FLOLAN [Suspect]
     Indication: EISENMENGER'S SYNDROME
     Route: 042
     Dates: start: 20050905
  2. WARFARIN SODIUM [Concomitant]
     Route: 048
  3. FUROSEMIDE [Concomitant]
     Route: 048
  4. SPIRONOLACTONE [Concomitant]
     Route: 048
  5. TRACLEER [Concomitant]
     Route: 048
     Dates: start: 20051007

REACTIONS (1)
  - ASTHMA [None]
